FAERS Safety Report 22065897 (Version 2)
Quarter: 2023Q2

REPORT INFORMATION
  Report Type: Spontaneous
  Country: US (occurrence: US)
  Receive Date: 20230306
  Receipt Date: 20230508
  Transmission Date: 20230722
  Serious: Yes (Hospitalization, Other)
  Sender: FDA-Public Use
  Company Number: US-SA-SAC20230303001137

PATIENT
  Age: 53 Year
  Sex: Female

DRUGS (29)
  1. DUPIXENT [Suspect]
     Active Substance: DUPILUMAB
     Indication: Asthma
     Dosage: 300 MG, QOW
     Route: 058
     Dates: start: 202103
  2. DUPIXENT [Suspect]
     Active Substance: DUPILUMAB
     Dosage: UNK
     Dates: start: 20221122, end: 20230421
  3. CHOLECALCIFEROL [Concomitant]
     Active Substance: CHOLECALCIFEROL
     Dosage: UNK
     Dates: start: 20221210
  4. CLONAZEPAM [Concomitant]
     Active Substance: CLONAZEPAM
     Dosage: 1 DF, Q12H AS NEEDED
     Route: 048
  5. ESCITALOPRAM [Concomitant]
     Active Substance: ESCITALOPRAM OXALATE
     Dosage: 20 MG, QD
     Route: 048
     Dates: end: 20230423
  6. FLUTICASONE [Concomitant]
     Active Substance: FLUTICASONE
     Dosage: UNK UNK, BID USE 1 SPRAY(S) IN EACH NOSTRIL
     Route: 045
     Dates: start: 20221117, end: 20230423
  7. GABAPENTIN [Concomitant]
     Active Substance: GABAPENTIN
     Dosage: 300 MG
     Route: 048
     Dates: start: 20220301
  8. IPRATROPIUM BROMIDE AND ALBUTEROL SULFATE [Concomitant]
     Active Substance: ALBUTEROL SULFATE\IPRATROPIUM BROMIDE
     Dosage: UNK UNK, Q6H, USE 1 AMPULE IN NEBULIZER AS NEEDED
     Dates: start: 20221018, end: 20230423
  9. LOSARTAN [Concomitant]
     Active Substance: LOSARTAN
     Dosage: 25 MG, QD
     Route: 048
     Dates: end: 20230423
  10. MELATONIN [Concomitant]
     Active Substance: MELATONIN
     Route: 048
  11. MELOXICAM [Concomitant]
     Active Substance: MELOXICAM
     Dosage: 15 MG, QD
     Route: 048
     Dates: start: 20220301, end: 20230423
  12. METHOCARBAMOL [Concomitant]
     Active Substance: METHOCARBAMOL
     Dosage: 750 MG, TID
     Route: 048
     Dates: start: 20221101, end: 20230423
  13. MONTELUKAST SODIUM [Concomitant]
     Active Substance: MONTELUKAST SODIUM
     Dosage: 10 MG, QD
     Route: 048
     Dates: end: 20230423
  14. NAPROXEN [Concomitant]
     Active Substance: NAPROXEN
     Dosage: 1 DF, BID WITH MEALS
     Route: 048
     Dates: start: 20221215, end: 20230423
  15. NITROFURANTOIN MONOHYDRATE MACROCRYSTALS [Concomitant]
     Active Substance: NITROFURANTOIN\NITROFURANTOIN MONOHYDRATE
     Dosage: UNK
     Dates: start: 20220907, end: 20230423
  16. OMEPRAZOLE [Concomitant]
     Active Substance: OMEPRAZOLE
     Dosage: 1 DF, QD
     Route: 048
     Dates: start: 20221215, end: 20230103
  17. PROAIR HFA [Concomitant]
     Active Substance: ALBUTEROL SULFATE
     Indication: Dyspnoea
     Dosage: UNK
     Dates: start: 20220907, end: 20230426
  18. PROAIR HFA [Concomitant]
     Active Substance: ALBUTEROL SULFATE
     Dosage: UNK
     Dates: start: 20230501
  19. QUETIAPINE [Concomitant]
     Active Substance: QUETIAPINE
     Dosage: 50 MG
     Route: 048
     Dates: end: 20230423
  20. SODIUM CHLORIDE [Concomitant]
     Active Substance: SODIUM CHLORIDE
     Dosage: 10 ML
     Route: 042
     Dates: start: 20220712, end: 20230423
  21. SUMATRIPTAN [Concomitant]
     Active Substance: SUMATRIPTAN
     Dosage: 100 MG, PRN
     Route: 048
     Dates: end: 20230423
  22. BACLOFEN [Concomitant]
     Active Substance: BACLOFEN
     Dosage: UNK
     Dates: start: 20220907, end: 20230423
  23. DIVALPROEX SODIUM [Concomitant]
     Active Substance: DIVALPROEX SODIUM
     Dosage: 1 DF, TID
     Route: 048
  24. FOLIC ACID [Concomitant]
     Active Substance: FOLIC ACID
     Dosage: 1 DF, BID
     Route: 048
  25. LACOSAMIDE [Concomitant]
     Active Substance: LACOSAMIDE
     Dosage: 1 DF, Q12H
     Route: 048
  26. MIRTAZAPINE [Concomitant]
     Active Substance: MIRTAZAPINE
     Dosage: 1 DF, HS
     Route: 048
  27. RAMELTEON [Concomitant]
     Active Substance: RAMELTEON
     Route: 048
  28. ASPIRIN [Concomitant]
     Active Substance: ASPIRIN
     Dosage: 1 DF, QD
     Route: 048
     Dates: start: 20230309, end: 20230421
  29. BUDESONIDE\FORMOTEROL FUMARATE [Concomitant]
     Active Substance: BUDESONIDE\FORMOTEROL FUMARATE
     Dosage: UNK
     Dates: start: 20230501

REACTIONS (18)
  - Unresponsive to stimuli [Unknown]
  - Seizure [Unknown]
  - Coma [Recovered/Resolved]
  - Acute respiratory failure [Unknown]
  - Hypoxia [Unknown]
  - Cerebrovascular accident [Unknown]
  - Hypokalaemia [Unknown]
  - Encephalopathy [Unknown]
  - Neurologic neglect syndrome [Unknown]
  - Paraesthesia [Unknown]
  - Hypoaesthesia [Unknown]
  - Blood lactic acid increased [Unknown]
  - Respiration abnormal [Unknown]
  - Blood glucose increased [Unknown]
  - Muscular weakness [Unknown]
  - Tremor [Unknown]
  - Somnolence [Unknown]
  - Chest pain [Unknown]

NARRATIVE: CASE EVENT DATE: 20230101
